FAERS Safety Report 8393828-7 (Version None)
Quarter: 2012Q2

REPORT INFORMATION
  Report Type: 
  Country: None (occurrence: None)
  Receive Date: 20120530
  Receipt Date: 20120525
  Transmission Date: 20120825
  Serious: No
  Sender: FDA-Public Use
  Company Number: US-PFIZER INC-2012127302

PATIENT
  Age: 67 Year
  Sex: Female

DRUGS (1)
  1. MECLIZINE HCL [Suspect]
     Indication: VERTIGO
     Dosage: UNK

REACTIONS (8)
  - GAIT DISTURBANCE [None]
  - FATIGUE [None]
  - IMPAIRED DRIVING ABILITY [None]
  - MALAISE [None]
  - FALL [None]
  - DRUG INEFFECTIVE [None]
  - FEELING ABNORMAL [None]
  - ASTHENIA [None]
